FAERS Safety Report 6189461-8 (Version None)
Quarter: 2009Q2

REPORT INFORMATION
  Report Type: 
  Country: None (occurrence: None)
  Receive Date: 20090514
  Receipt Date: 20090126
  Transmission Date: 20091009
  Serious: No
  Sender: FDA-Public Use
  Company Number: IE-PFIZER INC-2009161635

PATIENT

DRUGS (1)
  1. TOVIAZ [Suspect]
     Route: 048

REACTIONS (1)
  - URINARY RETENTION [None]
